FAERS Safety Report 23280242 (Version 2)
Quarter: 2023Q4

REPORT INFORMATION
  Report Type: Spontaneous
  Country: US (occurrence: US)
  Receive Date: 20231210
  Receipt Date: 20231229
  Transmission Date: 20240110
  Serious: No
  Sender: FDA-Public Use
  Company Number: US-BEIGENE-BGN-2023-014703

PATIENT

DRUGS (1)
  1. BRUKINSA [Suspect]
     Active Substance: ZANUBRUTINIB
     Indication: Marginal zone lymphoma
     Dosage: 80 MILLIGRAM, BID
     Route: 048
     Dates: start: 20230501

REACTIONS (2)
  - Jarisch-Herxheimer reaction [Unknown]
  - Tremor [Unknown]
